FAERS Safety Report 9468889 (Version 1)
Quarter: 2013Q3

REPORT INFORMATION
  Report Type: Spontaneous
  Country: US (occurrence: US)
  Receive Date: 20130821
  Receipt Date: 20130821
  Transmission Date: 20140515
  Serious: Yes (Hospitalization, Other)
  Sender: FDA-Public Use
  Company Number: US-ASTRAZENECA-2013SE63563

PATIENT
  Age: 56 Year
  Sex: Male

DRUGS (6)
  1. LISINOPRIL [Suspect]
     Route: 048
  2. CRESTOR [Suspect]
     Route: 048
  3. BRILINTA [Suspect]
     Indication: CORONARY ARTERIAL STENT INSERTION
     Route: 048
  4. SIMVASTATIN [Suspect]
     Route: 065
     Dates: end: 20130813
  5. COREG [Concomitant]
     Indication: ACUTE CORONARY SYNDROME
     Dates: end: 20130813
  6. ASPIRIN [Concomitant]

REACTIONS (6)
  - Chest pain [Unknown]
  - Acute coronary syndrome [Unknown]
  - Bradycardia [Unknown]
  - Troponin increased [Unknown]
  - Thrombosis in device [Unknown]
  - Intentional drug misuse [Recovered/Resolved]
